FAERS Safety Report 20796784 (Version 2)
Quarter: 2022Q2

REPORT INFORMATION
  Report Type: Spontaneous
  Country: US (occurrence: US)
  Receive Date: 20220506
  Receipt Date: 20220509
  Transmission Date: 20220720
  Serious: No
  Sender: FDA-Public Use
  Company Number: US-PFIZER INC-202200527572

PATIENT
  Age: 51 Year
  Sex: Female

DRUGS (2)
  1. XELJANZ XR [Interacting]
     Active Substance: TOFACITINIB CITRATE
     Dosage: UNK
  2. MOTRIN [Interacting]
     Active Substance: IBUPROFEN
     Indication: Rheumatoid arthritis
     Dosage: UNK

REACTIONS (1)
  - Potentiating drug interaction [Unknown]
